FAERS Safety Report 7203721-0 (Version None)
Quarter: 2010Q4

REPORT INFORMATION
  Report Type: 
  Country: None (occurrence: None)
  Receive Date: 20101230
  Receipt Date: 20101228
  Transmission Date: 20110411
  Serious: Yes (Death, Other)
  Sender: FDA-Public Use
  Company Number: JP-BAYER-201013315BYL

PATIENT
  Sex: Male

DRUGS (5)
  1. NEXAVAR [Suspect]
     Indication: HEPATIC NEOPLASM MALIGNANT
     Route: 048
     Dates: start: 20091007
  2. NEXAVAR [Suspect]
     Dosage: 600 MG (DAILY DOSE), , ORAL
     Route: 048
     Dates: start: 20091024, end: 20091102
  3. NEXAVAR [Suspect]
     Dosage: 200 MG (DAILY DOSE), , ORAL
     Route: 048
     Dates: start: 20091111
  4. NEXAVAR [Suspect]
     Dosage: 400 MG (DAILY DOSE), , ORAL
     Route: 048
     Dates: start: 20091114, end: 20091116
  5. CISPLATIN [Concomitant]
     Indication: HEPATIC NEOPLASM MALIGNANT
     Dosage: DAILY DOSE 20 MG/M2
     Route: 013

REACTIONS (6)
  - BLOOD AMYLASE INCREASED [None]
  - CARDIAC FAILURE [None]
  - HEPATIC ENCEPHALOPATHY [None]
  - HYPERBILIRUBINAEMIA [None]
  - HYPERTENSION [None]
  - PALMAR-PLANTAR ERYTHRODYSAESTHESIA SYNDROME [None]
